FAERS Safety Report 17947624 (Version 1)
Quarter: 2020Q2

REPORT INFORMATION
  Report Type: Spontaneous
  Country: US (occurrence: US)
  Receive Date: 20200624
  Receipt Date: 20200624
  Transmission Date: 20200714
  Serious: Yes (Hospitalization)
  Sender: FDA-Public Use
  Company Number: None

PATIENT
  Age: 40 Year
  Sex: Female
  Weight: 62.14 kg

DRUGS (6)
  1. LUPRON [Suspect]
     Active Substance: LEUPROLIDE ACETATE
     Indication: ABDOMINAL PAIN
  2. LUPRON [Suspect]
     Active Substance: LEUPROLIDE ACETATE
     Indication: UTERINE LEIOMYOMA
     Dates: start: 202002, end: 202005
  3. LUPRON [Suspect]
     Active Substance: LEUPROLIDE ACETATE
     Indication: UTERINE LEIOMYOMA
  4. XANAX [Concomitant]
     Active Substance: ALPRAZOLAM
  5. LUPRON [Suspect]
     Active Substance: LEUPROLIDE ACETATE
     Indication: MENORRHAGIA
  6. PAXIL [Concomitant]
     Active Substance: PAROXETINE HYDROCHLORIDE

REACTIONS (15)
  - Hot flush [None]
  - Emotional distress [None]
  - Anxiety [None]
  - Suicidal ideation [None]
  - Fatigue [None]
  - Menorrhagia [None]
  - Confusional state [None]
  - Hyperhidrosis [None]
  - Withdrawal syndrome [None]
  - Anger [None]
  - Abnormal behaviour [None]
  - Emotional disorder [None]
  - Loss of personal independence in daily activities [None]
  - Fall [None]
  - Impulsive behaviour [None]

NARRATIVE: CASE EVENT DATE: 202002
